FAERS Safety Report 9623773 (Version 1)
Quarter: 2013Q4

REPORT INFORMATION
  Report Type: Spontaneous
  Country: CH (occurrence: CH)
  Receive Date: 20131015
  Receipt Date: 20131015
  Transmission Date: 20140711
  Serious: Yes (Death, Other)
  Sender: FDA-Public Use
  Company Number: CH-TEVA-436564ISR

PATIENT
  Age: 44 Year
  Sex: Male

DRUGS (3)
  1. METFORMIN [Suspect]
     Route: 048
  2. DIDANOSINE [Suspect]
     Indication: HIV INFECTION
     Route: 048
  3. STAVUDINE [Suspect]
     Indication: HIV INFECTION
     Route: 048

REACTIONS (3)
  - Lactic acidosis [Fatal]
  - Acute hepatic failure [Fatal]
  - Hyperlactacidaemia [Unknown]
